FAERS Safety Report 9955539 (Version 1)
Quarter: 2014Q1

REPORT INFORMATION
  Report Type: Report from Study
  Country: US (occurrence: US)
  Receive Date: 20140304
  Receipt Date: 20140304
  Transmission Date: 20141002
  Serious: No
  Sender: FDA-Public Use
  Company Number: US-ABBVIE-13P-163-1084205-00

PATIENT
  Age: 58 Year
  Sex: Male
  Weight: 84.44 kg

DRUGS (10)
  1. HUMIRA [Suspect]
     Indication: RHEUMATOID ARTHRITIS
     Route: 058
     Dates: start: 201207
  2. ALAVERT [Concomitant]
     Indication: ALLERGIC SINUSITIS
  3. ALBUTEROL [Concomitant]
     Indication: ASTHMA
  4. ALLERGY RELIEF OTC [Concomitant]
     Indication: ALLERGIC SINUSITIS
  5. ASPIRIN [Concomitant]
     Indication: CARDIOVASCULAR EVENT PROPHYLAXIS
     Route: 048
  6. BUTRANS [Concomitant]
     Indication: ARTHRALGIA
     Route: 062
  7. FLONASE [Concomitant]
     Indication: ALLERGIC SINUSITIS
  8. FOLIC ACID [Concomitant]
     Indication: VITAMIN SUPPLEMENTATION
  9. SINGULAIR [Concomitant]
     Indication: ASTHMA
  10. VENTOLIN [Concomitant]
     Indication: ASTHMA

REACTIONS (2)
  - Joint swelling [Recovered/Resolved]
  - Arthralgia [Not Recovered/Not Resolved]
